FAERS Safety Report 14523301 (Version 1)
Quarter: 2018Q1

REPORT INFORMATION
  Report Type: Spontaneous
  Country: US (occurrence: US)
  Receive Date: 20180212
  Receipt Date: 20180212
  Transmission Date: 20180509
  Serious: No
  Sender: FDA-Public Use
  Company Number: US-AMAG PHARMACEUTICALS, INC.-AMAG201701202

PATIENT

DRUGS (4)
  1. FOLIC ACID XTRA [Concomitant]
     Indication: SEIZURE
     Dosage: UNK
     Route: 065
     Dates: start: 2015
  2. TOPIRAMATE. [Concomitant]
     Active Substance: TOPIRAMATE
     Indication: SEIZURE
     Dosage: UNK
     Route: 065
     Dates: start: 2015
  3. PRENATAL VITAMINS [Concomitant]
     Active Substance: VITAMINS
     Indication: PREGNANCY
     Dosage: UNK UNK, BID
     Route: 048
     Dates: start: 2016
  4. MAKENA [Suspect]
     Active Substance: HYDROXYPROGESTERONE CAPROATE
     Indication: PREMATURE DELIVERY
     Dosage: 250 MG/ML, UNK
     Route: 065
     Dates: start: 20170311

REACTIONS (11)
  - Palpitations [Recovered/Resolved]
  - Somnolence [Recovered/Resolved]
  - Injection site mass [Unknown]
  - Hypoaesthesia [Recovered/Resolved]
  - Injection site pruritus [Unknown]
  - Injection site bruising [Unknown]
  - Dizziness [Recovered/Resolved]
  - Nausea [Recovered/Resolved]
  - Injection site erythema [Unknown]
  - Headache [Recovered/Resolved]
  - Injection site nodule [Unknown]

NARRATIVE: CASE EVENT DATE: 201703
